FAERS Safety Report 23819817 (Version 3)
Quarter: 2024Q2

REPORT INFORMATION
  Report Type: Spontaneous
  Country: US (occurrence: US)
  Receive Date: 20240506
  Receipt Date: 20240523
  Transmission Date: 20240716
  Serious: Yes (Other)
  Sender: FDA-Public Use
  Company Number: US-AUROBINDO-AUR-APL-2024-021982

PATIENT
  Age: 4 Year
  Sex: Male

DRUGS (3)
  1. CLOBAZAM [Suspect]
     Active Substance: CLOBAZAM
     Indication: Seizure cluster
     Dosage: UNK (5MG (2ML) IN A.M AND 15MG (6ML) QHS (1MKD.))
     Route: 065
  2. LEVETIRACETAM [Concomitant]
     Active Substance: LEVETIRACETAM
     Indication: Seizure cluster
     Dosage: UNK UNK, TWO TIMES A DAY (400MG (4ML) BID (~40MKD) )
     Route: 065
  3. KLONOPIN [Concomitant]
     Active Substance: CLONAZEPAM
     Indication: Product used for unknown indication
     Dosage: UNK, TWO TIMES A DAY (0.125MG BID (0.01MKD))
     Route: 065

REACTIONS (5)
  - Atonic seizures [Unknown]
  - Seizure [Unknown]
  - Product use issue [Unknown]
  - Insurance issue [Unknown]
  - Product substitution issue [Unknown]
